FAERS Safety Report 25189332 (Version 3)
Quarter: 2025Q3

REPORT INFORMATION
  Report Type: Report from Study
  Country: US (occurrence: US)
  Receive Date: 20250411
  Receipt Date: 20250814
  Transmission Date: 20251020
  Serious: Yes (Other)
  Sender: SUNOVION
  Company Number: US-SMPA-2025SPA004163

PATIENT
  Age: 60 Year
  Sex: Male

DRUGS (3)
  1. ORGOVYX [Suspect]
     Active Substance: RELUGOLIX
     Indication: Prostate cancer
     Route: 048
  2. ORGOVYX [Suspect]
     Active Substance: RELUGOLIX
     Dosage: 120 MG, QD
     Route: 048
     Dates: start: 20240214
  3. ABIRATERONE [Suspect]
     Active Substance: ABIRATERONE

REACTIONS (22)
  - Choking [Unknown]
  - Emotional disorder [Unknown]
  - Disturbance in attention [Unknown]
  - Motor dysfunction [Unknown]
  - Weight decreased [Unknown]
  - Decreased appetite [Unknown]
  - Dry mouth [Unknown]
  - Fall [Unknown]
  - Nervous system disorder [Unknown]
  - Nerve compression [Unknown]
  - Erythema [Unknown]
  - Vision blurred [Unknown]
  - Hypoaesthesia [Unknown]
  - Electric shock sensation [Unknown]
  - Trigger finger [Unknown]
  - Arthropathy [Unknown]
  - Headache [Unknown]
  - Asthenia [Recovering/Resolving]
  - Fatigue [Recovering/Resolving]
  - Hot flush [Unknown]
  - Insomnia [Unknown]
  - Hyperhidrosis [Unknown]
